FAERS Safety Report 24275348 (Version 2)
Quarter: 2024Q3

REPORT INFORMATION
  Report Type: Spontaneous
  Country: DE (occurrence: DE)
  Receive Date: 20240903
  Receipt Date: 20240923
  Transmission Date: 20241017
  Serious: Yes (Other)
  Sender: NOVO NORDISK
  Company Number: None

PATIENT
  Age: 83 Year
  Sex: Female
  Weight: 105.4 kg

DRUGS (5)
  1. LEVEMIR [Suspect]
     Active Substance: INSULIN DETEMIR
     Indication: Product used for unknown indication
     Dosage: UNK
  2. HUMALOG [Suspect]
     Active Substance: INSULIN LISPRO
     Dosage: 200
     Dates: start: 20220427
  3. HUMALOG [Suspect]
     Active Substance: INSULIN LISPRO
     Indication: Insulin-requiring type 2 diabetes mellitus
     Dosage: 100
  4. TRULICITY [Suspect]
     Active Substance: DULAGLUTIDE
     Indication: Weight control
     Dosage: UNK
  5. INSULIN HUMAN [Suspect]
     Active Substance: INSULIN HUMAN
     Indication: Type 2 diabetes mellitus
     Dosage: 16 + 12 IE
     Dates: start: 20211125, end: 2022

REACTIONS (13)
  - Pancreatitis [Unknown]
  - Thrombosis [Unknown]
  - Inflammation [Unknown]
  - Nausea [Unknown]
  - Tooth loss [Unknown]
  - Dental caries [Unknown]
  - Weight increased [Unknown]
  - Diarrhoea [Unknown]
  - Motor dysfunction [Unknown]
  - Petechiae [Unknown]
  - General physical health deterioration [Unknown]
  - Muscle spasms [Unknown]
  - Drug intolerance [Unknown]

NARRATIVE: CASE EVENT DATE: 20220101
